FAERS Safety Report 21299262 (Version 1)
Quarter: 2022Q3

REPORT INFORMATION
  Report Type: Report from Study
  Country: CA (occurrence: None)
  Receive Date: 20220906
  Receipt Date: 20220906
  Transmission Date: 20221026
  Serious: Yes (Other)
  Sender: FDA-Public Use
  Company Number: 2022A308718

PATIENT
  Age: 77 Year
  Sex: Female

DRUGS (2)
  1. TAGRISSO [Suspect]
     Active Substance: OSIMERTINIB
     Indication: Small cell lung cancer extensive stage
     Route: 048
     Dates: start: 20210219
  2. TAGRISSO [Suspect]
     Active Substance: OSIMERTINIB
     Indication: Small cell lung cancer extensive stage
     Dosage: TRAGRISSO OF 80 MG ALTERNATED WITH 40 MG PO DAILY
     Route: 048

REACTIONS (2)
  - Gastrointestinal toxicity [Unknown]
  - Product use issue [Unknown]

NARRATIVE: CASE EVENT DATE: 20220101
